FAERS Safety Report 6242200-4 (Version None)
Quarter: 2009Q2

REPORT INFORMATION
  Report Type: 
  Country: None (occurrence: None)
  Receive Date: 20090622
  Receipt Date: 20090622
  Transmission Date: 20091009
  Serious: Yes (Life-Threatening, Hospitalization, Other)
  Sender: FDA-Public Use
  Company Number: None

PATIENT
  Age: 25 Year
  Sex: Female
  Weight: 90 kg

DRUGS (7)
  1. FENTANYL CITRATE [Suspect]
     Indication: LABOUR PAIN
     Dosage: 50 MCG, 1 DAY, INTRATHECAL
     Route: 037
     Dates: start: 20090521, end: 20090521
  2. DURAMORPH PF [Suspect]
     Indication: LABOUR PAIN
     Dosage: .25 MG, 1 DAY, INTRATHECAL
     Route: 037
     Dates: start: 20090521, end: 20090521
  3. 1% LIDOCAINE HCL INJECTION, USP [Concomitant]
  4. 5% LIDOCAINE HCL AND 7.5% DEXTROSE INJECTION, USP (LIDOCAINE) [Concomitant]
  5. ONDANSETRON [Concomitant]
  6. SODIUM CHLORIDE [Concomitant]
  7. OXYTOCIN [Concomitant]

REACTIONS (3)
  - CONVULSION [None]
  - MENINGITIS BACTERIAL [None]
  - UNRESPONSIVE TO STIMULI [None]
